FAERS Safety Report 19653975 (Version 5)
Quarter: 2021Q3

REPORT INFORMATION
  Report Type: Spontaneous
  Country: US (occurrence: US)
  Receive Date: 20210804
  Receipt Date: 20210930
  Transmission Date: 20211014
  Serious: No
  Sender: FDA-Public Use
  Company Number: US-STRONGBRIDGE BIOPHARMA-2021-STR-000264

PATIENT
  Age: 57 Year
  Sex: Male

DRUGS (1)
  1. KEVEYIS [Suspect]
     Active Substance: DICHLORPHENAMIDE
     Indication: PRODUCT USED FOR UNKNOWN INDICATION
     Dosage: 50 MG, BID
     Route: 048
     Dates: start: 20210713

REACTIONS (9)
  - Polyuria [Unknown]
  - Renal pain [Recovering/Resolving]
  - Blood urine present [Unknown]
  - Hypoaesthesia [Not Recovered/Not Resolved]
  - Pain [Unknown]
  - Paraesthesia [Not Recovered/Not Resolved]
  - Fatigue [Recovering/Resolving]
  - Malaise [Recovering/Resolving]
  - Renal pain [Unknown]

NARRATIVE: CASE EVENT DATE: 20210915
